FAERS Safety Report 15298426 (Version 2)
Quarter: 2018Q3

REPORT INFORMATION
  Report Type: Spontaneous
  Country: IL (occurrence: IL)
  Receive Date: 20180820
  Receipt Date: 20180823
  Transmission Date: 20181010
  Serious: Yes (Hospitalization)
  Sender: FDA-Public Use
  Company Number: IL-TAKEDA-2018TUS025056

PATIENT
  Age: 25 Year
  Sex: Female

DRUGS (1)
  1. ENTYVIO [Suspect]
     Active Substance: VEDOLIZUMAB
     Indication: CROHN^S DISEASE
     Dosage: 300 MG, UNK
     Route: 042
     Dates: start: 201708, end: 201804

REACTIONS (3)
  - Ear infection [Unknown]
  - Abscess [Unknown]
  - Tonsillitis [Unknown]

NARRATIVE: CASE EVENT DATE: 201710
